FAERS Safety Report 13348987 (Version 1)
Quarter: 2017Q1

REPORT INFORMATION
  Report Type: Other
  Country: IN (occurrence: IN)
  Receive Date: 20170320
  Receipt Date: 20170320
  Transmission Date: 20170428
  Serious: Yes (Other)
  Sender: FDA-Public Use
  Company Number: IN-HETERO LABS LTD-1064398

PATIENT
  Age: 29 Year
  Sex: Female

DRUGS (2)
  1. ARIPIPRAZOLE. [Suspect]
     Active Substance: ARIPIPRAZOLE
     Indication: BIPOLAR DISORDER
     Route: 065
  2. OLANZAPINE. [Suspect]
     Active Substance: OLANZAPINE
     Route: 065

REACTIONS (3)
  - Akathisia [Recovered/Resolved]
  - Obsessive-compulsive disorder [Recovered/Resolved]
  - Anxiety [Recovered/Resolved]
